FAERS Safety Report 10978578 (Version 1)
Quarter: 2015Q2

REPORT INFORMATION
  Report Type: Spontaneous
  Country: US (occurrence: None)
  Receive Date: 20150401
  Receipt Date: 20150401
  Transmission Date: 20150821
  Serious: Yes (Hospitalization)
  Sender: FDA-Public Use
  Company Number: None

PATIENT
  Age: 78 Year
  Sex: Male
  Weight: 69.3 kg

DRUGS (1)
  1. DONEPEZIL [Suspect]
     Active Substance: DONEPEZIL
     Indication: DEMENTIA
     Route: 048
     Dates: start: 20141231, end: 20150202

REACTIONS (5)
  - Abnormal behaviour [None]
  - Aggression [None]
  - Transient ischaemic attack [None]
  - Mental disorder [None]
  - Carotid artery occlusion [None]

NARRATIVE: CASE EVENT DATE: 20150105
